FAERS Safety Report 9628096 (Version 1)
Quarter: 2013Q4

REPORT INFORMATION
  Report Type: Report from Study
  Country: ZA (occurrence: ZA)
  Receive Date: 20131017
  Receipt Date: 20131017
  Transmission Date: 20140711
  Serious: Yes (Death)
  Sender: FDA-Public Use
  Company Number: ZA-ROCHE-1289932

PATIENT
  Sex: Male

DRUGS (4)
  1. MIRCERA [Suspect]
     Indication: NEPHROGENIC ANAEMIA
     Route: 058
     Dates: start: 20121107
  2. MIRCERA [Suspect]
     Route: 058
     Dates: start: 20101007
  3. MIRCERA [Suspect]
     Route: 058
     Dates: start: 20111209
  4. MIRCERA [Suspect]
     Route: 058
     Dates: start: 20120821

REACTIONS (1)
  - Death [Fatal]
